FAERS Safety Report 24950096 (Version 3)
Quarter: 2025Q2

REPORT INFORMATION
  Report Type: Report from Study
  Country: ZA (occurrence: ZA)
  Receive Date: 20250210
  Receipt Date: 20250428
  Transmission Date: 20250717
  Serious: Yes (Congenital Anomaly, Other)
  Sender: MYLAN
  Company Number: ZA-MYLANLABS-2025M1010884

PATIENT
  Sex: Female
  Weight: 3.7 kg

DRUGS (2)
  1. DOLUTEGRAVIR\LAMIVUDINE\TENOFOVIR DISOPROXIL FUMARATE [Suspect]
     Active Substance: DOLUTEGRAVIR\LAMIVUDINE\TENOFOVIR DISOPROXIL FUMARATE
     Indication: Product used for unknown indication
     Dosage: 650 MILLIGRAM, QD
     Dates: start: 2020
  2. FOLATE SODIUM [Concomitant]
     Active Substance: FOLATE SODIUM

REACTIONS (4)
  - Dysmorphism [Unknown]
  - Heart disease congenital [Unknown]
  - Congenital umbilical hernia [Unknown]
  - Foetal exposure during pregnancy [Recovered/Resolved]

NARRATIVE: CASE EVENT DATE: 20250101
